FAERS Safety Report 7201323-3 (Version None)
Quarter: 2010Q4

REPORT INFORMATION
  Report Type: 
  Country: None (occurrence: None)
  Receive Date: 20101229
  Receipt Date: 20101216
  Transmission Date: 20110411
  Serious: Yes (Hospitalization)
  Sender: FDA-Public Use
  Company Number: PHHY2010MX38088

PATIENT
  Age: 82 Year
  Sex: Female

DRUGS (9)
  1. GALVUS [Suspect]
     Indication: DIABETES MELLITUS
     Dosage: (50 MG), 2 DF, QD
     Dates: start: 20090201, end: 20100601
  2. CO-DIOVAN [Suspect]
     Indication: HYPERTENSION
     Dosage: 1 DF, QD
  3. FORTEO [Concomitant]
  4. BIVCANT [Concomitant]
  5. PADIET [Concomitant]
  6. CONCOR [Concomitant]
     Dosage: UNK
     Dates: start: 20050101
  7. TRANXENE [Concomitant]
  8. PANTOPRAZOLE [Concomitant]
  9. PARIET [Concomitant]

REACTIONS (9)
  - BLOOD GLUCOSE INCREASED [None]
  - DECREASED APPETITE [None]
  - DRY MOUTH [None]
  - DRY SKIN [None]
  - GASTRIC ULCER HAEMORRHAGE [None]
  - INSOMNIA [None]
  - LACRIMATION INCREASED [None]
  - MUSCULAR WEAKNESS [None]
  - NERVOUSNESS [None]
